FAERS Safety Report 19077891 (Version 1)
Quarter: 2021Q1

REPORT INFORMATION
  Report Type: Spontaneous
  Country: US (occurrence: US)
  Receive Date: 20210331
  Receipt Date: 20210331
  Transmission Date: 20210420
  Serious: Yes (Hospitalization)
  Sender: FDA-Public Use
  Company Number: None

PATIENT
  Age: 72 Year
  Sex: Male
  Weight: 55.34 kg

DRUGS (2)
  1. AXITINIB (AXITINIB 5MG TAB, ORAL) [Suspect]
     Active Substance: AXITINIB
     Indication: CARDIAC FAILURE CONGESTIVE
     Route: 048
     Dates: start: 20200107, end: 20210305
  2. AXITINIB (AXITINIB 5MG TAB, ORAL) [Suspect]
     Active Substance: AXITINIB
     Indication: CARDIOMEGALY

REACTIONS (3)
  - Dyspnoea [None]
  - Cardiomegaly [None]
  - Palpitations [None]

NARRATIVE: CASE EVENT DATE: 20210304
